FAERS Safety Report 21734400 (Version 1)
Quarter: 2022Q4

REPORT INFORMATION
  Report Type: Report from Study
  Country: US (occurrence: US)
  Receive Date: 20221215
  Receipt Date: 20221215
  Transmission Date: 20230112
  Serious: Yes (Other)
  Sender: FDA-Public Use
  Company Number: US-ABBVIE-4236771

PATIENT
  Age: 63 Year
  Sex: Female

DRUGS (1)
  1. HUMIRA [Suspect]
     Active Substance: ADALIMUMAB
     Indication: Product used for unknown indication
     Dosage: EVENT END DATES SHOULD BE 2022 AND DRUG END DATE ALSO 2022
     Route: 058

REACTIONS (2)
  - Hip arthroplasty [Recovered/Resolved]
  - Spinal laminectomy [Recovered/Resolved]

NARRATIVE: CASE EVENT DATE: 20220615
